FAERS Safety Report 6546319-X (Version None)
Quarter: 2010Q1

REPORT INFORMATION
  Report Type: 
  Country: None (occurrence: None)
  Receive Date: 20100122
  Receipt Date: 20100114
  Transmission Date: 20100710
  Serious: Yes (Hospitalization)
  Sender: FDA-Public Use
  Company Number: PT-ROCHE-679936

PATIENT
  Sex: Female
  Weight: 63.8 kg

DRUGS (5)
  1. BONIVA [Suspect]
     Indication: OSTEOPOROSIS
     Dosage: DOSE: 1 DU UNITARY DOSE, FORM:FILM COATED TABLET
     Route: 048
     Dates: start: 20091025
  2. INDOBUFEN [Concomitant]
     Dates: start: 20090101
  3. SIMVASTATIN [Concomitant]
     Route: 048
  4. NIFEDIPINE [Concomitant]
     Route: 048
     Dates: start: 20040101
  5. OMEPRAZOLE [Concomitant]
     Route: 048
     Dates: start: 20040101

REACTIONS (5)
  - BACK PAIN [None]
  - DIARRHOEA [None]
  - MONOPLEGIA [None]
  - SYNCOPE [None]
  - VOMITING [None]
